FAERS Safety Report 23723415 (Version 3)
Quarter: 2024Q3

REPORT INFORMATION
  Report Type: Spontaneous
  Country: JP (occurrence: JP)
  Receive Date: 20240409
  Receipt Date: 20240729
  Transmission Date: 20241016
  Serious: Yes (Other)
  Sender: SANOFI AVENTIS
  Company Number: JP-ASTELLAS-2024JP002269

PATIENT
  Age: 56 Year
  Sex: Male

DRUGS (1)
  1. TAMSULOSIN HYDROCHLORIDE [Suspect]
     Active Substance: TAMSULOSIN HYDROCHLORIDE
     Dosage: UNK
     Route: 048

REACTIONS (7)
  - Eosinophilic myocarditis [Recovering/Resolving]
  - Suffocation feeling [Recovering/Resolving]
  - Palpitations [Recovering/Resolving]
  - Cardiomegaly [Recovering/Resolving]
  - Mitral valve incompetence [Recovering/Resolving]
  - Left atrial enlargement [Recovering/Resolving]
  - Pulmonary congestion [Recovering/Resolving]
